FAERS Safety Report 11105622 (Version 1)
Quarter: 2015Q2

REPORT INFORMATION
  Report Type: Spontaneous
  Country: US (occurrence: None)
  Receive Date: 20150511
  Receipt Date: 20150511
  Transmission Date: 20150821
  Serious: Yes (Hospitalization)
  Sender: FDA-Public Use
  Company Number: None

PATIENT
  Age: 28 Year
  Sex: Female

DRUGS (2)
  1. 6-MP (MERCAPTOPURINE) [Suspect]
     Active Substance: MERCAPTOPURINE ANHYDROUS
     Dates: start: 20130204, end: 20131109
  2. THIOGUANINE [Suspect]
     Active Substance: THIOGUANINE
     Dates: start: 20130516, end: 20130530

REACTIONS (13)
  - Drug-induced liver injury [None]
  - Jaundice [None]
  - Nasal congestion [None]
  - Dizziness [None]
  - Cholestatic liver injury [None]
  - Cough [None]
  - Blood bilirubin increased [None]
  - Alanine aminotransferase increased [None]
  - Aspartate aminotransferase increased [None]
  - Pallor [None]
  - Pancytopenia [None]
  - Fatigue [None]
  - Bilirubin conjugated increased [None]

NARRATIVE: CASE EVENT DATE: 20131109
